FAERS Safety Report 7098630-4 (Version None)
Quarter: 2010Q4

REPORT INFORMATION
  Report Type: 
  Country: None (occurrence: None)
  Receive Date: 20101110
  Receipt Date: 20101110
  Transmission Date: 20110411
  Serious: Yes (Hospitalization)
  Sender: FDA-Public Use
  Company Number: None

PATIENT
  Sex: Male

DRUGS (4)
  1. ABRAXANE [Suspect]
     Indication: PANCREATIC CARCINOMA
     Dosage: 100MG/M2 DAY 1,8,15 IV
     Route: 042
     Dates: start: 20100920, end: 20101025
  2. VANDETANIB [Suspect]
     Indication: PANCREATIC CARCINOMA
     Dosage: 300 MG QD PO
     Route: 048
     Dates: start: 20100920, end: 20101025
  3. MS CONTIN [Suspect]
  4. CIPRO [Concomitant]

REACTIONS (3)
  - FAECES DISCOLOURED [None]
  - NEUTROPHIL COUNT INCREASED [None]
  - WHITE BLOOD CELL COUNT INCREASED [None]
